FAERS Safety Report 6274314-7 (Version None)
Quarter: 2009Q3

REPORT INFORMATION
  Report Type: 
  Country: None (occurrence: None)
  Receive Date: 20090720
  Receipt Date: 20090714
  Transmission Date: 20100115
  Serious: Yes (Other)
  Sender: FDA-Public Use
  Company Number: ES-ABBOTT-09P-144-0585048-00

PATIENT
  Age: 56 Year
  Sex: Female

DRUGS (1)
  1. REDUCTIL 10MG [Suspect]
     Indication: WEIGHT DECREASED
     Dosage: DAILY DOSE: 10 MILLIGRAMS
     Route: 048
     Dates: start: 20090205, end: 20090221

REACTIONS (1)
  - PNEUMONIA [None]
